FAERS Safety Report 14833356 (Version 1)
Quarter: 2018Q2

REPORT INFORMATION
  Report Type: Spontaneous
  Country: JP (occurrence: JP)
  Receive Date: 20180501
  Receipt Date: 20180501
  Transmission Date: 20180711
  Serious: Yes (Other)
  Sender: FDA-Public Use
  Company Number: JP-JNJFOC-20180428878

PATIENT

DRUGS (1)
  1. DARZALEX [Suspect]
     Active Substance: DARATUMUMAB
     Indication: PRODUCT USED FOR UNKNOWN INDICATION
     Route: 041
     Dates: start: 20180117

REACTIONS (3)
  - Coombs direct test positive [Recovered/Resolved]
  - Crossmatch incompatible [Unknown]
  - Coombs indirect test positive [Recovered/Resolved]

NARRATIVE: CASE EVENT DATE: 20180118
